FAERS Safety Report 7624183-5 (Version None)
Quarter: 2011Q3

REPORT INFORMATION
  Report Type: 
  Country: None (occurrence: None)
  Receive Date: 20110720
  Receipt Date: 20110720
  Transmission Date: 20111222
  Serious: Yes (Other)
  Sender: FDA-Public Use
  Company Number: None

PATIENT
  Sex: Female

DRUGS (14)
  1. DILANTIN [Interacting]
  2. FOLIC ACID [Interacting]
  3. DIFIDOBIOTICS [Interacting]
  4. AMPHETAMINE AND DEXTROAMPHETAMINE SALTS [Suspect]
     Indication: LYME DISEASE
     Dosage: 1 TABLET
     Route: 048
     Dates: start: 20110713, end: 20110717
  5. PLAQUENIL [Interacting]
  6. THYROID TAB [Interacting]
  7. AMOXICILLIN [Interacting]
  8. FISH OIL [Interacting]
  9. CALCIUM CARBONATE [Interacting]
  10. HYDROCORTISONE [Interacting]
  11. GLUTAGENICS [Interacting]
  12. VITAMIN D [Interacting]
  13. VITAFOL [Interacting]
  14. CULTURELLE [Interacting]

REACTIONS (15)
  - HYPOAESTHESIA [None]
  - PRODUCT SUBSTITUTION ISSUE [None]
  - PALPITATIONS [None]
  - NAUSEA [None]
  - DISEASE RECURRENCE [None]
  - HYPERHIDROSIS [None]
  - AGITATION [None]
  - VISION BLURRED [None]
  - DIARRHOEA [None]
  - DYSPNOEA [None]
  - VISUAL IMPAIRMENT [None]
  - ANXIETY [None]
  - TREMOR [None]
  - CONFUSIONAL STATE [None]
  - FEELING ABNORMAL [None]
